FAERS Safety Report 4583733-6 (Version None)
Quarter: 2005Q1

REPORT INFORMATION
  Report Type: 
  Country: None (occurrence: None)
  Receive Date: 20050216
  Receipt Date: 20050202
  Transmission Date: 20050727
  Serious: Yes (Hospitalization)
  Sender: FDA-Public Use
  Company Number: 200510432JP

PATIENT
  Age: 79 Year
  Sex: Female
  Weight: 52 kg

DRUGS (6)
  1. ARAVA [Suspect]
     Indication: RHEUMATOID ARTHRITIS
     Route: 048
     Dates: start: 20040306
  2. MOBIC [Concomitant]
     Indication: RHEUMATOID ARTHRITIS
     Dates: start: 20021012
  3. NEUROTROPIN [Concomitant]
     Indication: CERVICOBRACHIAL SYNDROME
     Dosage: DOSE: 4 TABLETS
     Route: 048
     Dates: start: 20021012
  4. PREDONINE [Concomitant]
     Indication: RHEUMATOID ARTHRITIS
     Route: 048
     Dates: start: 20021012
  5. EPADEL [Concomitant]
     Indication: HYPERLIPIDAEMIA
     Route: 048
  6. LOXONIN [Concomitant]
     Indication: RHEUMATOID ARTHRITIS
     Dosage: DOSE: 3 TABLETS
     Route: 048

REACTIONS (9)
  - ALANINE AMINOTRANSFERASE INCREASED [None]
  - ASPARTATE AMINOTRANSFERASE INCREASED [None]
  - BLOOD LACTATE DEHYDROGENASE INCREASED [None]
  - BLOOD PRESSURE INCREASED [None]
  - BLOOD URINE PRESENT [None]
  - GLUCOSE URINE PRESENT [None]
  - MYELITIS [None]
  - PROTEIN URINE PRESENT [None]
  - WHITE BLOOD CELL COUNT INCREASED [None]
